FAERS Safety Report 11757244 (Version 1)
Quarter: 2015Q4

REPORT INFORMATION
  Report Type: Spontaneous
  Country: US (occurrence: None)
  Receive Date: 20151119
  Receipt Date: 20151119
  Transmission Date: 20160304
  Serious: Yes (Hospitalization)
  Sender: FDA-Public Use
  Company Number: None

PATIENT
  Age: 77 Year
  Sex: Female
  Weight: 53.7 kg

DRUGS (4)
  1. PROCARBAZINE [Suspect]
     Active Substance: PROCARBAZINE
     Dates: end: 20151014
  2. RITUXIMAB (MOAB C2B8 ANTI CD20, CHIMERIC) [Suspect]
     Active Substance: RITUXIMAB
     Dates: end: 20151104
  3. METHOTREXATE [Suspect]
     Active Substance: METHOTREXATE
     Dates: end: 20151022
  4. VINCRISTINE SULFATE. [Suspect]
     Active Substance: VINCRISTINE SULFATE
     Dates: end: 20150924

REACTIONS (6)
  - Cerebrovascular accident [None]
  - Escherichia test positive [None]
  - Chills [None]
  - Confusional state [None]
  - Drooling [None]
  - Pyrexia [None]

NARRATIVE: CASE EVENT DATE: 20151104
